FAERS Safety Report 8518477-9 (Version None)
Quarter: 2012Q3

REPORT INFORMATION
  Report Type: 
  Country: None (occurrence: None)
  Receive Date: 20120718
  Receipt Date: 20120329
  Transmission Date: 20120928
  Serious: No
  Sender: FDA-Public Use
  Company Number: US-BRISTOL-MYERS SQUIBB COMPANY-16488488

PATIENT
  Sex: Female

DRUGS (1)
  1. COUMADIN [Suspect]
     Dosage: COUMADIN DAILY DOSE:1 MG+2 MG.PRESCRIBED COUMADIN 5MG,LAST NIGHT(28MAR12)+ 2MG:TONIGHT 29MAR12).

REACTIONS (1)
  - INTERNATIONAL NORMALISED RATIO DECREASED [None]
